FAERS Safety Report 4306924-8 (Version None)
Quarter: 2004Q1

REPORT INFORMATION
  Report Type: 
  Country: None (occurrence: None)
  Receive Date: 20040225
  Receipt Date: 20040203
  Transmission Date: 20041129
  Serious: Yes (Hospitalization)
  Sender: FDA-Public Use
  Company Number: GBS040214434

PATIENT
  Age: 85 Year
  Sex: Female

DRUGS (4)
  1. VANCOMYCIN HYDROCHLORIDE [Suspect]
     Route: 042
     Dates: start: 20030905, end: 20030913
  2. LISINOPRIL [Concomitant]
  3. OMEPRAZOLE [Concomitant]
  4. RIFAMPIN [Concomitant]

REACTIONS (1)
  - HYPONATRAEMIA [None]
